FAERS Safety Report 17192867 (Version 1)
Quarter: 2019Q4

REPORT INFORMATION
  Report Type: Spontaneous
  Country: US (occurrence: US)
  Receive Date: 20191223
  Receipt Date: 20191223
  Transmission Date: 20200122
  Serious: No
  Sender: FDA-Public Use
  Company Number: US-SA-2019SA351342

PATIENT
  Sex: Female

DRUGS (1)
  1. PRALUENT [Suspect]
     Active Substance: ALIROCUMAB

REACTIONS (6)
  - Pollakiuria [Unknown]
  - Hypertension [Unknown]
  - Urine abnormality [Unknown]
  - Muscle spasms [Unknown]
  - Rhinorrhoea [Unknown]
  - Erythema [Unknown]
